FAERS Safety Report 9692915 (Version 1)
Quarter: 2013Q4

REPORT INFORMATION
  Report Type: Spontaneous
  Country: US (occurrence: US)
  Receive Date: 20131118
  Receipt Date: 20131118
  Transmission Date: 20140711
  Serious: No
  Sender: FDA-Public Use
  Company Number: US-GLAXOSMITHKLINE-A1001278A

PATIENT
  Age: 62 Year
  Sex: Female

DRUGS (4)
  1. COREG CR [Suspect]
     Indication: BLOOD PRESSURE
     Dosage: 20MG PER DAY
     Route: 048
  2. LOSARTAN [Concomitant]
  3. PREMARIN [Concomitant]
  4. LEVOTHYROXINE [Concomitant]

REACTIONS (4)
  - Hypoaesthesia [Not Recovered/Not Resolved]
  - Muscle spasms [Not Recovered/Not Resolved]
  - Pain in extremity [Not Recovered/Not Resolved]
  - Heart rate irregular [Not Recovered/Not Resolved]
